FAERS Safety Report 9514863 (Version 1)
Quarter: 2013Q1

REPORT INFORMATION
  Report Type: Spontaneous
  Country: US (occurrence: None)
  Receive Date: 20130305
  Receipt Date: 20130305
  Transmission Date: 20140127
  Serious: Yes (Hospitalization)
  Sender: FDA-Public Use
  Company Number: 163-21880-12121810

PATIENT
  Age: 52 Year
  Sex: Female

DRUGS (9)
  1. REVLIMID (LENALIDOMIDE) (CAPSULES) [Suspect]
     Indication: PLASMA CELL MYELOMA
     Dosage: 15 MG,  28 IN 28 D,  PO
     Route: 048
     Dates: start: 20120402
  2. VALTREX (VALACICLOVIR HYDROCHLORIDE0 (UNKNOWN) [Concomitant]
  3. SPIRONOLACTONE (SPIRONOLACTONE) (UNKNOWN) [Concomitant]
  4. MAGNESIUM OXIDE (MAGNESIUM OXIDE) (UNKNOWN) [Concomitant]
  5. LEVAQUIN (LEVOFLOXACIN) (UNKNOWN) [Concomitant]
  6. DIOVAN HCT (CO-DIOVAN) (UNKNOWN) [Concomitant]
  7. DEXAMETHASONE (DEXAMETHASONE) (UNKNOWN) [Concomitant]
  8. COREG (CARVEDILOL) (UNKNOWN) [Concomitant]
  9. ALKERAN (MELPHALAN) (UNKNOWN) [Concomitant]

REACTIONS (1)
  - Pneumonia [None]
